FAERS Safety Report 6330963-9 (Version None)
Quarter: 2009Q3

REPORT INFORMATION
  Report Type: 
  Country: None (occurrence: None)
  Receive Date: 20090827
  Receipt Date: 20090821
  Transmission Date: 20100115
  Serious: Yes (Other)
  Sender: FDA-Public Use
  Company Number: B0590267A

PATIENT
  Age: 54 Year
  Sex: Female

DRUGS (6)
  1. ALLI [Suspect]
     Route: 065
     Dates: start: 20090101
  2. THYROXIN [Concomitant]
  3. EYEDROPS [Concomitant]
  4. LANSOPRAZOLE [Concomitant]
  5. NORPROLAC [Concomitant]
  6. ASTHMA MEDICATION [Concomitant]

REACTIONS (2)
  - FALL [None]
  - SYNCOPE [None]
